FAERS Safety Report 8540377-9 (Version None)
Quarter: 2012Q3

REPORT INFORMATION
  Report Type: 
  Country: None (occurrence: None)
  Receive Date: 20120726
  Receipt Date: 20120213
  Transmission Date: 20120928
  Serious: No
  Sender: FDA-Public Use
  Company Number: US-ASTRAZENECA-2010SE57652

PATIENT
  Age: 48 Year
  Sex: Female

DRUGS (4)
  1. SEROQUEL XR [Suspect]
     Route: 048
  2. SEROQUEL XR [Suspect]
     Route: 048
  3. SEROQUEL XR [Suspect]
     Indication: SLEEP DISORDER
     Route: 048
  4. SEROQUEL XR [Suspect]
     Indication: NERVOUSNESS
     Route: 048

REACTIONS (4)
  - STRESS [None]
  - WEIGHT DECREASED [None]
  - SPINAL OSTEOARTHRITIS [None]
  - TOOTH DISORDER [None]
